FAERS Safety Report 6657390-9 (Version None)
Quarter: 2010Q1

REPORT INFORMATION
  Report Type: 
  Country: None (occurrence: None)
  Receive Date: 20100330
  Receipt Date: 20100108
  Transmission Date: 20100710
  Serious: Yes (Death, Hospitalization)
  Sender: FDA-Public Use
  Company Number: TW-JNJFOC-20081201723

PATIENT
  Sex: Male
  Weight: 63.8 kg

DRUGS (32)
  1. CYTARABINE [Suspect]
     Indication: ACUTE MYELOID LEUKAEMIA
     Route: 058
  2. CYTARABINE [Suspect]
     Route: 058
  3. CYTARABINE [Suspect]
     Dosage: CYCLE 1
     Route: 058
  4. CYTARABINE [Suspect]
     Route: 058
  5. REGROW [Concomitant]
     Indication: COUGH
     Dosage: ONCE EVERY BEDTIME (QHS)
     Route: 048
  6. PLATYCODON FLUID EXTRACT [Concomitant]
     Indication: COUGH
     Dosage: 4 TIMES A DAY WHEN NECESSARY
     Route: 048
  7. NERISONE FATTY OINTMENT [Concomitant]
     Dosage: 0.1%
     Route: 061
  8. LORAZEPAM [Concomitant]
     Indication: INSOMNIA
     Dosage: ONCE EVERY BEDTIME (QHS)
     Route: 048
  9. ALLERMIN [Concomitant]
     Indication: PROPHYLAXIS
     Route: 042
  10. DECADRON [Concomitant]
     Indication: PROPHYLAXIS
     Route: 042
  11. PRIMPERAN INJ [Concomitant]
     Indication: PROPHYLAXIS
     Route: 042
  12. AMLODIPINE [Concomitant]
     Indication: HYPERTENSION
     Route: 048
  13. LACTULOSE [Concomitant]
     Indication: CONSTIPATION
     Route: 048
  14. LACTULOSE [Concomitant]
     Route: 048
  15. ZOLPIDEM [Concomitant]
     Indication: INSOMNIA
     Route: 048
  16. TRIAMCINOLONE ACETONIDE [Concomitant]
     Indication: PROPHYLAXIS
     Route: 061
  17. BENAZON [Concomitant]
     Indication: HAEMORRHOIDS
     Route: 061
  18. BORRAGINOL-N [Concomitant]
     Route: 054
  19. ACETYLCYSTEINE [Concomitant]
     Route: 048
  20. ACETYLCYSTEINE [Concomitant]
     Route: 048
  21. LEVOFLOXACIN [Concomitant]
     Route: 048
  22. MAGNESIUM [Concomitant]
     Indication: CONSTIPATION
     Route: 048
  23. SENNA [Concomitant]
     Indication: CONSTIPATION
     Route: 048
  24. SENNA [Concomitant]
     Route: 048
  25. COMBIVENT [Concomitant]
     Dosage: 140 MCG
     Route: 055
  26. TRANSAMIN [Concomitant]
     Route: 042
  27. CEFTAZIDIME [Concomitant]
     Route: 042
  28. TIGECYCLINE [Concomitant]
     Route: 042
  29. MEGESTROL ACETATE [Concomitant]
     Indication: DECREASED APPETITE
     Route: 048
  30. TRAMADOL HYDROCHLORIDE [Concomitant]
     Route: 042
  31. DIOVAN HCT [Concomitant]
     Route: 048
  32. METOCLOPRAMIDE [Concomitant]
     Route: 042

REACTIONS (10)
  - CARDIAC FAILURE [None]
  - CELLULITIS [None]
  - DEPRESSED LEVEL OF CONSCIOUSNESS [None]
  - GENERALISED OEDEMA [None]
  - PNEUMONIA [None]
  - PYREXIA [None]
  - RENAL FAILURE [None]
  - RENAL FAILURE ACUTE [None]
  - SEPTIC SHOCK [None]
  - SHOCK [None]
